FAERS Safety Report 8095379-6 (Version None)
Quarter: 2012Q1

REPORT INFORMATION
  Report Type: 
  Country: None (occurrence: None)
  Receive Date: 20120126
  Receipt Date: 20120111
  Transmission Date: 20120608
  Serious: Yes (Other)
  Sender: FDA-Public Use
  Company Number: AE 2011-563

PATIENT
  Age: 70 Year
  Sex: Female
  Weight: 76 kg

DRUGS (2)
  1. NALOXONE HYDROCHLORIDE [Concomitant]
  2. PRIALT [Suspect]
     Indication: PAIN
     Dosage: ONCE/HOUR, IT
     Route: 037
     Dates: start: 20110801, end: 20111216

REACTIONS (2)
  - VISUAL IMPAIRMENT [None]
  - AGEUSIA [None]
